FAERS Safety Report 20946913 (Version 21)
Quarter: 2025Q1

REPORT INFORMATION
  Report Type: Report from Study
  Country: CA (occurrence: CA)
  Receive Date: 20220610
  Receipt Date: 20250303
  Transmission Date: 20250409
  Serious: Yes (Other)
  Sender: TAKEDA
  Company Number: CA-TAKEDA-CA202001009

PATIENT
  Age: 76 Year
  Sex: Female

DRUGS (37)
  1. ICATIBANT [Suspect]
     Active Substance: ICATIBANT ACETATE
     Indication: Hereditary angioedema
  2. ICATIBANT [Suspect]
     Active Substance: ICATIBANT ACETATE
     Indication: Hereditary angioedema with C1 esterase inhibitor deficiency
  3. ICATIBANT [Suspect]
     Active Substance: ICATIBANT ACETATE
     Indication: Gastrointestinal disorder
  4. ICATIBANT [Suspect]
     Active Substance: ICATIBANT ACETATE
  5. ICATIBANT [Suspect]
     Active Substance: ICATIBANT ACETATE
  6. ICATIBANT [Suspect]
     Active Substance: ICATIBANT ACETATE
  7. ICATIBANT [Suspect]
     Active Substance: ICATIBANT ACETATE
  8. ICATIBANT [Suspect]
     Active Substance: ICATIBANT ACETATE
  9. ICATIBANT [Suspect]
     Active Substance: ICATIBANT ACETATE
  10. ICATIBANT [Suspect]
     Active Substance: ICATIBANT ACETATE
  11. ICATIBANT [Suspect]
     Active Substance: ICATIBANT ACETATE
  12. ICATIBANT [Suspect]
     Active Substance: ICATIBANT ACETATE
  13. ICATIBANT [Suspect]
     Active Substance: ICATIBANT ACETATE
  14. ICATIBANT [Suspect]
     Active Substance: ICATIBANT ACETATE
  15. ICATIBANT [Suspect]
     Active Substance: ICATIBANT ACETATE
  16. ICATIBANT [Suspect]
     Active Substance: ICATIBANT ACETATE
  17. ICATIBANT [Suspect]
     Active Substance: ICATIBANT ACETATE
  18. ICATIBANT [Suspect]
     Active Substance: ICATIBANT ACETATE
  19. ICATIBANT [Suspect]
     Active Substance: ICATIBANT ACETATE
  20. ICATIBANT [Suspect]
     Active Substance: ICATIBANT ACETATE
  21. ICATIBANT [Suspect]
     Active Substance: ICATIBANT ACETATE
  22. ICATIBANT [Suspect]
     Active Substance: ICATIBANT ACETATE
  23. ICATIBANT [Suspect]
     Active Substance: ICATIBANT ACETATE
  24. ICATIBANT [Suspect]
     Active Substance: ICATIBANT ACETATE
  25. ICATIBANT [Suspect]
     Active Substance: ICATIBANT ACETATE
  26. ICATIBANT [Suspect]
     Active Substance: ICATIBANT ACETATE
  27. TAKHZYRO [Suspect]
     Active Substance: LANADELUMAB-FLYO
     Indication: Product used for unknown indication
  28. ATENOLOL [Concomitant]
     Active Substance: ATENOLOL
  29. RANITIDINE [Concomitant]
     Active Substance: RANITIDINE
  30. BERINERT [Concomitant]
     Active Substance: HUMAN C1-ESTERASE INHIBITOR
     Indication: Pharyngeal swelling
     Dosage: UNK, 2/WEEK
  31. MINERALS\VITAMINS [Concomitant]
     Active Substance: MINERALS\VITAMINS
  32. BENADRYL [Concomitant]
     Active Substance: DIPHENHYDRAMINE HYDROCHLORIDE
  33. DANAZOL [Concomitant]
     Active Substance: DANAZOL
  34. PREDNISONE [Concomitant]
     Active Substance: PREDNISONE
  35. GAVISCON [Concomitant]
     Active Substance: ALUMINUM HYDROXIDE\MAGNESIUM CARBONATE
  36. UNSPECIFIED INGREDIENT [Concomitant]
     Active Substance: UNSPECIFIED INGREDIENT
  37. NEXIUM [Concomitant]
     Active Substance: ESOMEPRAZOLE MAGNESIUM

REACTIONS (35)
  - Basal cell carcinoma [Not Recovered/Not Resolved]
  - Oesophageal injury [Unknown]
  - Cataract [Unknown]
  - Laryngitis [Unknown]
  - Expired product administered [Unknown]
  - Nasopharyngitis [Not Recovered/Not Resolved]
  - Insomnia [Unknown]
  - Gastrointestinal disorder [Not Recovered/Not Resolved]
  - Blood pressure increased [Not Recovered/Not Resolved]
  - Sensation of foreign body [Unknown]
  - Biliary colic [Unknown]
  - Giant cell arteritis [Unknown]
  - Sensitive skin [Unknown]
  - Fatigue [Unknown]
  - Poor quality sleep [Unknown]
  - Drug ineffective [Not Recovered/Not Resolved]
  - Illness [Unknown]
  - Bowel movement irregularity [Unknown]
  - Irritable bowel syndrome [Not Recovered/Not Resolved]
  - Cough [Unknown]
  - Abdominal discomfort [Not Recovered/Not Resolved]
  - Cystitis [Recovered/Resolved]
  - Diverticulum intestinal [Unknown]
  - Constipation [Unknown]
  - Product use in unapproved indication [Unknown]
  - Procedural pain [Unknown]
  - Gastric polyps [Unknown]
  - Fall [Not Recovered/Not Resolved]
  - Joint swelling [Not Recovered/Not Resolved]
  - Nasal congestion [Recovered/Resolved]
  - Abdominal distension [Unknown]
  - Diarrhoea [Unknown]
  - Hereditary angioedema [Not Recovered/Not Resolved]
  - Abdominal pain [Unknown]
  - Rash [Unknown]

NARRATIVE: CASE EVENT DATE: 20191101
